FAERS Safety Report 4564375-5 (Version None)
Quarter: 2005Q1

REPORT INFORMATION
  Report Type: 
  Country: None (occurrence: None)
  Receive Date: 20050128
  Receipt Date: 20050120
  Transmission Date: 20050727
  Serious: Yes (Hospitalization)
  Sender: FDA-Public Use
  Company Number: FR-GLAXOSMITHKLINE-B0365099A

PATIENT
  Age: 4 Year
  Sex: Male

DRUGS (2)
  1. MALARONE [Suspect]
     Indication: MALARIA PROPHYLAXIS
     Route: 048
     Dates: start: 20041201, end: 20050103
  2. OROKEN [Suspect]
     Indication: ILL-DEFINED DISORDER
     Dosage: 100MG TWICE PER DAY
     Route: 048
     Dates: start: 20041225, end: 20050105

REACTIONS (1)
  - CLOSTRIDIUM COLITIS [None]
